FAERS Safety Report 6408735-6 (Version None)
Quarter: 2009Q4

REPORT INFORMATION
  Report Type: 
  Country: None (occurrence: None)
  Receive Date: 20091021
  Receipt Date: 20091015
  Transmission Date: 20100525
  Serious: Yes (Disabling)
  Sender: FDA-Public Use
  Company Number: A0784332A

PATIENT
  Age: 45 Year
  Sex: Female
  Weight: 110 kg

DRUGS (19)
  1. PROMACTA [Suspect]
     Indication: IDIOPATHIC THROMBOCYTOPENIC PURPURA
     Dosage: 50MG PER DAY
     Route: 048
     Dates: start: 20090429
  2. MS CONTIN [Concomitant]
     Dosage: 60MG TWICE PER DAY
     Route: 048
  3. PRILOSEC [Concomitant]
  4. SIMVASTATIN [Concomitant]
  5. TOPAMAX [Concomitant]
  6. COUMADIN [Concomitant]
  7. MORPHINE SULFATE [Concomitant]
     Indication: PAIN
  8. VERAPAMIL [Concomitant]
     Dosage: 120MG PER DAY
     Route: 048
  9. LEVOXYL [Concomitant]
     Dosage: 88MCG PER DAY
     Route: 048
  10. SEREVENT [Concomitant]
     Dosage: 1PUFF TWICE PER DAY
  11. LASIX [Concomitant]
     Dosage: 40MG PER DAY
     Route: 048
  12. SINGULAIR [Concomitant]
     Dosage: 10MG AT NIGHT
     Route: 048
  13. CLARITIN [Concomitant]
     Dosage: 10MG PER DAY
     Route: 048
  14. TRAZODONE [Concomitant]
     Route: 048
  15. NEURONTIN [Concomitant]
     Dosage: 1300MG TWICE PER DAY
  16. MECLIZINE [Concomitant]
     Dosage: 12.5MG AS REQUIRED
  17. COMPAZINE [Concomitant]
     Dosage: 10MG AS REQUIRED
  18. PREVACID [Concomitant]
     Dosage: 30MG TWICE PER DAY
     Route: 048
  19. IMMUNE GLOBULIN INTRAVENOUS (HUMAN) [Concomitant]
     Indication: IDIOPATHIC THROMBOCYTOPENIC PURPURA

REACTIONS (6)
  - ABDOMINAL DISCOMFORT [None]
  - DIZZINESS [None]
  - HEADACHE [None]
  - NAUSEA [None]
  - OVARIAN CYST [None]
  - VOMITING [None]
